FAERS Safety Report 9736464 (Version 2)
Quarter: 2013Q4

REPORT INFORMATION
  Report Type: Report from Study
  Country: ES (occurrence: ES)
  Receive Date: 20131206
  Receipt Date: 20131206
  Transmission Date: 20140711
  Serious: Yes (Hospitalization)
  Sender: FDA-Public Use
  Company Number: ES-ASTELLAS-2012EU009512

PATIENT
  Age: 8 Month
  Sex: Male
  Weight: 6.8 kg

DRUGS (7)
  1. TACROLIMUS GRANULE [Suspect]
     Indication: IMMUNOSUPPRESSION
     Dosage: 0.6 MG, Q12 HOURS
     Route: 048
     Dates: start: 20120719
  2. RANITIDINE [Concomitant]
     Indication: PROPHYLAXIS AGAINST GASTROINTESTINAL ULCER
     Dosage: UNK
     Route: 048
     Dates: start: 20120723
  3. FUROSEMIDE [Concomitant]
     Indication: DIURETIC THERAPY
     Dosage: UNK
     Route: 048
     Dates: start: 20120725
  4. SULFAMETOXAZOL/TRIMETOPRIM [Concomitant]
     Indication: INFECTION
     Dosage: UNK
     Route: 048
     Dates: start: 20120720
  5. SPIRONOLACTONE [Concomitant]
     Dosage: UNK
     Route: 048
     Dates: start: 20120719
  6. NYSTATIN [Concomitant]
     Indication: INFECTION PROPHYLAXIS
     Dosage: UNK
     Route: 048
     Dates: start: 20120717
  7. IMMUNOGLOBULIN ANTICYTOMEGALOVIRUS [Concomitant]
     Indication: PROPHYLAXIS
     Dosage: UNK
     Route: 042
     Dates: start: 20120716

REACTIONS (1)
  - Febrile neutropenia [Recovered/Resolved]
